FAERS Safety Report 7874475-X (Version None)
Quarter: 2011Q3

REPORT INFORMATION
  Report Type: 
  Country: None (occurrence: None)
  Receive Date: 20110926
  Receipt Date: 20110616
  Transmission Date: 20111222
  Serious: No
  Sender: FDA-Public Use
  Company Number: 953008

PATIENT
  Age: 64 Year
  Sex: Male

DRUGS (1)
  1. CARBOPLATIN [Suspect]
     Indication: CHEMOTHERAPY
     Dosage: EVERY WEEK

REACTIONS (3)
  - HYPERHIDROSIS [None]
  - NAUSEA [None]
  - PRURITUS [None]
